FAERS Safety Report 6806200-5 (Version None)
Quarter: 2010Q2

REPORT INFORMATION
  Report Type: 
  Country: None (occurrence: None)
  Receive Date: 20100629
  Receipt Date: 20100625
  Transmission Date: 20101027
  Serious: Yes (Hospitalization, Other)
  Sender: FDA-Public Use
  Company Number: US-MERCK-0806USA08539

PATIENT
  Age: 63 Year
  Sex: Female
  Weight: 59 kg

DRUGS (3)
  1. FOSAMAX [Suspect]
     Indication: OSTEOPOROSIS
     Route: 048
     Dates: start: 20001201, end: 20011201
  2. FOSAMAX [Suspect]
     Route: 048
     Dates: start: 20020101, end: 20040801
  3. FOSAMAX [Suspect]
     Route: 048
     Dates: start: 20000101, end: 20050101

REACTIONS (23)
  - ABSCESS [None]
  - ANAEMIA [None]
  - ANAEMIA POSTOPERATIVE [None]
  - DENTAL CARIES [None]
  - EXOSTOSIS [None]
  - FISTULA [None]
  - GASTROINTESTINAL HAEMORRHAGE [None]
  - GINGIVAL BLEEDING [None]
  - GINGIVAL DISORDER [None]
  - HYPERSENSITIVITY [None]
  - IMPAIRED HEALING [None]
  - LIP NEOPLASM MALIGNANT STAGE UNSPECIFIED [None]
  - MIGRAINE [None]
  - OBSTRUCTION GASTRIC [None]
  - ORAL INFECTION [None]
  - OSTEOMYELITIS [None]
  - OSTEONECROSIS OF JAW [None]
  - PERIODONTITIS [None]
  - SINUS DISORDER [None]
  - STOMATITIS [None]
  - TEMPOROMANDIBULAR JOINT SYNDROME [None]
  - TOOTH ABSCESS [None]
  - ULCER [None]
